FAERS Safety Report 8928571 (Version 1)
Quarter: 2012Q4

REPORT INFORMATION
  Report Type: 
  Country: US (occurrence: US)
  Receive Date: 20121127
  Receipt Date: 20121127
  Transmission Date: 20130627
  Serious: Yes (Hospitalization)
  Sender: FDA-Public Use
  Company Number: US-CELGENEUS-163-21880-12101242

PATIENT
  Age: 63 Year
  Sex: Female
  Weight: 39.04 kg

DRUGS (3)
  1. REVLIMID [Suspect]
     Indication: MULTIPLE MYELOMA
     Dosage: 10 Milligram
     Route: 048
     Dates: start: 20100925
  2. ZOLEDRONIC ACID [Suspect]
     Indication: MULTIPLE MYELOMA
     Dosage: 4 Milligram
     Route: 041
     Dates: start: 20100928
  3. PROCRIT [Concomitant]
     Indication: ANEMIA
     Dosage: 40,000 units
     Route: 065
     Dates: start: 20120509, end: 20120627

REACTIONS (1)
  - Osteonecrosis of jaw [Recovering/Resolving]
